FAERS Safety Report 6258959-6 (Version None)
Quarter: 2009Q3

REPORT INFORMATION
  Report Type: 
  Country: None (occurrence: None)
  Receive Date: 20090707
  Receipt Date: 20090612
  Transmission Date: 20100115
  Serious: Yes (Hospitalization)
  Sender: FDA-Public Use
  Company Number: US-GENENTECH-285995

PATIENT
  Sex: Female

DRUGS (8)
  1. TRASTUZUMAB [Suspect]
     Indication: BREAST CANCER
     Dosage: 49 MG, Q3W
     Route: 042
     Dates: start: 20090126
  2. CARBOPLATIN [Suspect]
     Indication: BREAST CANCER
     Dosage: 440 MG, Q3W
     Route: 042
     Dates: start: 20090126
  3. DOCETAXEL [Suspect]
     Indication: BREAST CANCER
     Dosage: 155 MG, Q3W
     Route: 042
     Dates: start: 20090126
  4. HYDROCHLOROTHIAZIDE [Concomitant]
     Indication: DRUG USE FOR UNKNOWN INDICATION
     Dosage: UNK
  5. BENTYL [Concomitant]
     Indication: DRUG USE FOR UNKNOWN INDICATION
     Dosage: UNK
  6. PRILOSEC [Concomitant]
     Indication: DRUG USE FOR UNKNOWN INDICATION
     Dosage: UNK
  7. OXYCODONE [Concomitant]
     Indication: DRUG USE FOR UNKNOWN INDICATION
     Dosage: UNK
  8. COMPAZINE [Concomitant]
     Indication: DRUG USE FOR UNKNOWN INDICATION
     Dosage: UNK

REACTIONS (4)
  - ANAEMIA [None]
  - FOOT FRACTURE [None]
  - RENAL FAILURE ACUTE [None]
  - SPINAL COMPRESSION FRACTURE [None]
